FAERS Safety Report 7108602-9 (Version None)
Quarter: 2010Q4

REPORT INFORMATION
  Report Type: 
  Country: None (occurrence: None)
  Receive Date: 20101117
  Receipt Date: 20101111
  Transmission Date: 20110411
  Serious: Yes (Disabling, Other)
  Sender: FDA-Public Use
  Company Number: DE-PFIZER INC-2010122698

PATIENT
  Age: 60 Year
  Sex: Female
  Weight: 53 kg

DRUGS (5)
  1. ATORVASTATIN CALCIUM [Suspect]
     Indication: HYPERLIPIDAEMIA
     Dosage: 10 MG, UNK
     Route: 048
     Dates: start: 20081001, end: 20090701
  2. ATORVASTATIN CALCIUM [Suspect]
     Dosage: 20 MG, UNK
     Route: 048
     Dates: start: 20090701, end: 20100901
  3. METOPROLOL SUCCINATE [Concomitant]
     Indication: HYPERTENSION
     Dosage: 47.5 UNK, 1X/DAY
     Route: 048
     Dates: start: 20060101
  4. METOPROLOL SUCCINATE [Concomitant]
     Indication: TACHYCARDIA
  5. ESTRADIOL [Concomitant]
     Indication: MENOPAUSAL SYMPTOMS
     Dosage: 1 MG/DAY (1/2 TABLET)
     Route: 048
     Dates: start: 19970101, end: 20100101

REACTIONS (3)
  - DEAFNESS UNILATERAL [None]
  - HYPOACUSIS [None]
  - OTITIS MEDIA [None]
